FAERS Safety Report 12760545 (Version 2)
Quarter: 2017Q1

REPORT INFORMATION
  Report Type: Spontaneous
  Country: RU (occurrence: RU)
  Receive Date: 20160919
  Receipt Date: 20170206
  Transmission Date: 20170428
  Serious: Yes (Hospitalization, Other)
  Sender: FDA-Public Use
  Company Number: RU-ABBVIE-16P-251-1731568-00

PATIENT
  Age: 9 Year
  Sex: Male

DRUGS (4)
  1. ABACAVIR. [Suspect]
     Active Substance: ABACAVIR
     Indication: HIV INFECTION
     Route: 048
     Dates: start: 20100209, end: 201609
  2. KALETRA [Suspect]
     Active Substance: LOPINAVIR\RITONAVIR
     Indication: HIV INFECTION
     Dosage: 1 TABLET (100 MG LOPINAVIR + 25 MG RITONAVIR)
     Route: 048
     Dates: start: 20120209, end: 201609
  3. DIDANOSINE. [Concomitant]
     Active Substance: DIDANOSINE
     Indication: HIV INFECTION
     Route: 048
     Dates: start: 20100209, end: 201608
  4. LAMIVUDINE. [Suspect]
     Active Substance: LAMIVUDINE
     Indication: HIV INFECTION
     Route: 065
     Dates: start: 201608, end: 201609

REACTIONS (21)
  - Hepatic encephalopathy [Recovered/Resolved]
  - Inguinal hernia [Unknown]
  - Ascites [Recovered/Resolved]
  - Varices oesophageal [Recovering/Resolving]
  - Portal hypertension [Recovering/Resolving]
  - Cholecystitis chronic [Recovered/Resolved]
  - Spider naevus [Unknown]
  - Asthenia [Recovered/Resolved]
  - Fatigue [Recovered/Resolved]
  - Hepatosplenomegaly [Unknown]
  - Hepatic cirrhosis [Recovering/Resolving]
  - Overgrowth bacterial [Recovering/Resolving]
  - Abdominal pain [Recovered/Resolved]
  - Sphincter of Oddi dysfunction [Recovering/Resolving]
  - Waist circumference increased [Recovered/Resolved]
  - Thrombocytopenia [Recovered/Resolved]
  - Gastric haemorrhage [Recovered/Resolved]
  - Gastroduodenitis [Recovering/Resolving]
  - Duodenitis [Recovering/Resolving]
  - Decreased appetite [Recovered/Resolved]
  - Gastritis [Recovering/Resolving]

NARRATIVE: CASE EVENT DATE: 201608
